FAERS Safety Report 18134439 (Version 2)
Quarter: 2020Q3

REPORT INFORMATION
  Report Type: Spontaneous
  Country: CN (occurrence: CN)
  Receive Date: 20200811
  Receipt Date: 20200814
  Transmission Date: 20201103
  Serious: Yes (Other)
  Sender: FDA-Public Use
  Company Number: CN-PFIZER INC-2020300586

PATIENT
  Age: 70 Year
  Sex: Female

DRUGS (6)
  1. CISPLATIN. [Suspect]
     Active Substance: CISPLATIN
     Dosage: 60 MG, EVERY 3 WEEKS, INJECTION, CYCLIC,D2?D3, Q21
     Route: 042
     Dates: start: 20190613, end: 20190614
  2. PACLITAXEL. [Suspect]
     Active Substance: PACLITAXEL
     Dosage: 210 MG, EVERY 3 WEEKSCYCLIC, D1, INJECTION, Q21D
     Route: 042
     Dates: start: 20190712
  3. PACLITAXEL. [Suspect]
     Active Substance: PACLITAXEL
     Indication: OESOPHAGEAL SQUAMOUS CELL CARCINOMA
     Dosage: 210 MG, EVERY 3 WEEKS,CYCLIC, D1, INJECTION, Q21D
     Route: 042
     Dates: start: 20190516
  4. CISPLATIN. [Suspect]
     Active Substance: CISPLATIN
     Indication: OESOPHAGEAL SQUAMOUS CELL CARCINOMA
     Dosage: 60 MG, EVERY 3 WEEKS, INJECTION, CYCLIC,D2?D3, Q21
     Route: 042
     Dates: start: 20190517, end: 20190518
  5. PACLITAXEL. [Suspect]
     Active Substance: PACLITAXEL
     Dosage: 210 MG, EVERY 3 WEEKSCYCLIC, D1, INJECTION, Q21D
     Route: 042
     Dates: start: 20190612
  6. CISPLATIN. [Suspect]
     Active Substance: CISPLATIN
     Dosage: 60 MG, EVERY 3 WEEKS, INJECTION, CYCLIC,D2?D3, Q21
     Route: 042
     Dates: start: 20190713, end: 20190714

REACTIONS (2)
  - Toxicity to various agents [Unknown]
  - Epilepsy [Recovered/Resolved]

NARRATIVE: CASE EVENT DATE: 20190520
